FAERS Safety Report 20785205 (Version 1)
Quarter: 2022Q2

REPORT INFORMATION
  Report Type: Spontaneous
  Country: US (occurrence: None)
  Receive Date: 20220504
  Receipt Date: 20220504
  Transmission Date: 20220721
  Serious: Yes (Hospitalization)
  Sender: FDA-Public Use
  Company Number: None

PATIENT
  Sex: Male

DRUGS (7)
  1. TACROLIMUS [Suspect]
     Active Substance: TACROLIMUS
     Indication: Renal transplant
     Dosage: TAKE 2 CAPSULES BY MOUTH IN THE MORNING AND 1 CAPSULE IN THE EVENING?
     Route: 048
     Dates: start: 20211008
  2. TACROLIMUS [Suspect]
     Active Substance: TACROLIMUS
     Dosage: OTHER FREQUENCY : 2 IN AM/1 IN PM;?
     Route: 048
  3. CACLIUM [Concomitant]
  4. EVEROLIMUS [Concomitant]
     Active Substance: EVEROLIMUS
  5. MAGNESIUM POW ALUMINUM [Concomitant]
  6. VITAMIN C [Concomitant]
     Active Substance: ASCORBIC ACID
  7. ZINC [Concomitant]

REACTIONS (1)
  - Diverticulitis [None]
